FAERS Safety Report 15210465 (Version 1)
Quarter: 2018Q3

REPORT INFORMATION
  Report Type: Spontaneous
  Country: US (occurrence: US)
  Receive Date: 20180629
  Receipt Date: 20180629
  Transmission Date: 20181010
  Serious: No
  Sender: FDA-Public Use
  Company Number: None

PATIENT
  Age: 21 Year
  Sex: Male
  Weight: 94.5 kg

DRUGS (3)
  1. SIGNATURE CARE LUBRICATING EYE DROPS (PROPYLENE GLYCOL) [Suspect]
     Active Substance: PROPYLENE GLYCOL
     Indication: PRODUCT USED FOR UNKNOWN INDICATION
     Dosage: ?          QUANTITY:8 DROP(S);?
     Route: 047
     Dates: start: 20180629, end: 20180629
  2. SIGNATURE CARE LUBRICATING EYE DROPS (POLYETHYLENE GLYCOL 4000\PROPYLENE GLYCOL) [Suspect]
     Active Substance: POLYETHYLENE GLYCOL 4000\PROPYLENE GLYCOL
  3. LORATADIN [Concomitant]
     Active Substance: LORATADINE

REACTIONS (2)
  - Eye irritation [None]
  - Product substitution issue [None]

NARRATIVE: CASE EVENT DATE: 20180629
